FAERS Safety Report 4702658-6 (Version None)
Quarter: 2005Q2

REPORT INFORMATION
  Report Type: 
  Country: None (occurrence: None)
  Receive Date: 20050629
  Receipt Date: 20040930
  Transmission Date: 20051028
  Serious: No
  Sender: FDA-Public Use
  Company Number: US-GLAXOSMITHKLINE-A0527947A

PATIENT
  Age: 63 Year
  Sex: Male

DRUGS (3)
  1. ZYBAN [Suspect]
     Dosage: 150MG TWICE PER DAY
     Route: 048
     Dates: start: 20040830
  2. TOPROL-XL [Concomitant]
  3. LISINOPRIL [Concomitant]

REACTIONS (2)
  - HERPES ZOSTER [None]
  - RASH [None]
